FAERS Safety Report 20338430 (Version 1)
Quarter: 2022Q1

REPORT INFORMATION
  Report Type: Spontaneous
  Country: US (occurrence: US)
  Receive Date: 20220115
  Receipt Date: 20220115
  Transmission Date: 20220423
  Serious: No
  Sender: FDA-Public Use
  Company Number: US-GALDERMA-US2021020420

PATIENT

DRUGS (1)
  1. DIFFERIN GEL [Suspect]
     Active Substance: ADAPALENE
     Indication: Acne
     Dosage: 1 DOSAGE FORM, QD, EVERY NIGHT
     Route: 061

REACTIONS (4)
  - Skin wrinkling [Unknown]
  - Acne [Unknown]
  - Product physical consistency issue [Recovered/Resolved]
  - Poor quality product administered [Recovered/Resolved]
